FAERS Safety Report 7250395-9 (Version None)
Quarter: 2011Q1

REPORT INFORMATION
  Report Type: 
  Country: None (occurrence: None)
  Receive Date: 20110128
  Receipt Date: 20110126
  Transmission Date: 20110831
  Serious: Yes (Life-Threatening, Hospitalization)
  Sender: FDA-Public Use
  Company Number: FR-ROCHE-740324

PATIENT
  Sex: Male
  Weight: 68 kg

DRUGS (2)
  1. PEGINTERFERON ALFA-2A [Suspect]
     Dosage: LAST DOSE PRIOR TO SAE ON 02 JUN 2010
     Route: 058
     Dates: start: 20100423, end: 20100602
  2. BARACLUDE [Suspect]
     Route: 065

REACTIONS (1)
  - HEPATIC NEOPLASM MALIGNANT [None]
